FAERS Safety Report 4779986-1 (Version None)
Quarter: 2005Q3

REPORT INFORMATION
  Report Type: 
  Country: None (occurrence: None)
  Receive Date: 20050914
  Receipt Date: 20050623
  Transmission Date: 20060218
  Serious: Yes (Death, Hospitalization)
  Sender: FDA-Public Use
  Company Number: 163-20785-05060357

PATIENT
  Age: 69 Year
  Sex: Male

DRUGS (30)
  1. THALOMID [Suspect]
     Indication: MULTIPLE MYELOMA
     Dosage: 200 MG, DAILY, ORAL; 50 MG, DAILY, ORAL; 200 MG, DAILY, ORAL; 100 MG, DAILY, ORAL; 200 MG, DAILY, OR
     Route: 048
     Dates: start: 20050104, end: 20050107
  2. THALOMID [Suspect]
     Indication: MULTIPLE MYELOMA
     Dosage: 200 MG, DAILY, ORAL; 50 MG, DAILY, ORAL; 200 MG, DAILY, ORAL; 100 MG, DAILY, ORAL; 200 MG, DAILY, OR
     Route: 048
     Dates: start: 20050125, end: 20050129
  3. THALOMID [Suspect]
     Indication: MULTIPLE MYELOMA
     Dosage: 200 MG, DAILY, ORAL; 50 MG, DAILY, ORAL; 200 MG, DAILY, ORAL; 100 MG, DAILY, ORAL; 200 MG, DAILY, OR
     Route: 048
     Dates: start: 20050203, end: 20050203
  4. THALOMID [Suspect]
     Indication: MULTIPLE MYELOMA
     Dosage: 200 MG, DAILY, ORAL; 50 MG, DAILY, ORAL; 200 MG, DAILY, ORAL; 100 MG, DAILY, ORAL; 200 MG, DAILY, OR
     Route: 048
     Dates: start: 20050204, end: 20050204
  5. THALOMID [Suspect]
     Indication: MULTIPLE MYELOMA
     Dosage: 200 MG, DAILY, ORAL; 50 MG, DAILY, ORAL; 200 MG, DAILY, ORAL; 100 MG, DAILY, ORAL; 200 MG, DAILY, OR
     Route: 048
     Dates: start: 20050205, end: 20050206
  6. THALOMID [Suspect]
     Indication: MULTIPLE MYELOMA
     Dosage: 200 MG, DAILY, ORAL; 50 MG, DAILY, ORAL; 200 MG, DAILY, ORAL; 100 MG, DAILY, ORAL; 200 MG, DAILY, OR
     Route: 048
     Dates: start: 20050221, end: 20050303
  7. THALOMID [Suspect]
     Indication: MULTIPLE MYELOMA
     Dosage: 200 MG, DAILY, ORAL; 50 MG, DAILY, ORAL; 200 MG, DAILY, ORAL; 100 MG, DAILY, ORAL; 200 MG, DAILY, OR
     Route: 048
     Dates: start: 20050404, end: 20050416
  8. MELPHALAN (MELPHALAN) [Suspect]
     Indication: MULTIPLE MYELOMA
     Dosage: 200MG/M2, DAILY, INTRAVENOUS; 252 MG, DAILY, INTRAVENOUS
     Route: 042
     Dates: start: 20050306, end: 20050306
  9. MELPHALAN (MELPHALAN) [Suspect]
     Indication: MULTIPLE MYELOMA
     Dosage: 200MG/M2, DAILY, INTRAVENOUS; 252 MG, DAILY, INTRAVENOUS
     Route: 042
     Dates: start: 20050602, end: 20050602
  10. VELCADE [Suspect]
     Indication: MULTIPLE MYELOMA
     Dates: start: 20050101
  11. VELCADE [Suspect]
     Indication: MULTIPLE MYELOMA
     Dates: start: 20050131
  12. DEXAMETHASONE [Suspect]
     Indication: MULTIPLE MYELOMA
     Dates: start: 20050101
  13. DEXAMETHASONE [Suspect]
     Indication: MULTIPLE MYELOMA
     Dates: start: 20050131
  14. CISPLATIN [Suspect]
     Indication: MULTIPLE MYELOMA
     Dates: start: 20050101
  15. CISPLATIN [Suspect]
     Indication: MULTIPLE MYELOMA
     Dates: start: 20050131
  16. ADRIAMYCIN PFS [Suspect]
     Indication: MULTIPLE MYELOMA
     Dates: start: 20050101
  17. ADRIAMYCIN PFS [Suspect]
     Indication: MULTIPLE MYELOMA
     Dates: start: 20050131
  18. CYCLOPHOSPHAMIDE [Suspect]
     Indication: MULTIPLE MYELOMA
     Dates: start: 20050101
  19. CYCLOPHOSPHAMIDE [Suspect]
     Indication: MULTIPLE MYELOMA
     Dates: start: 20050131
  20. ETOPOSIDE [Suspect]
     Indication: MULTIPLE MYELOMA
     Dates: start: 20050101
  21. ETOPOSIDE [Suspect]
     Indication: MULTIPLE MYELOMA
     Dates: start: 20050131
  22. TEQUIN [Concomitant]
  23. HALOPERIDOL [Concomitant]
  24. KLOR-CON [Concomitant]
  25. DIGOXIN [Concomitant]
  26. FLUDROCORTISONE [Concomitant]
  27. FOLIC ACID [Concomitant]
  28. FLOMAX [Concomitant]
  29. ACYCLOVIR [Concomitant]
  30. ATIVAN [Concomitant]

REACTIONS (12)
  - ASTHENIA [None]
  - CONFUSIONAL STATE [None]
  - COUGH [None]
  - DEATH [None]
  - FEBRILE NEUTROPENIA [None]
  - LETHARGY [None]
  - LOCAL SWELLING [None]
  - NEUTROPENIA [None]
  - PAROTID GLAND ENLARGEMENT [None]
  - PYREXIA [None]
  - SWELLING [None]
  - TACHYCARDIA [None]
